FAERS Safety Report 6383961-3 (Version None)
Quarter: 2009Q4

REPORT INFORMATION
  Report Type: 
  Country: None (occurrence: None)
  Receive Date: 20091001
  Receipt Date: 20090922
  Transmission Date: 20100525
  Serious: Yes (Hospitalization)
  Sender: FDA-Public Use
  Company Number: US-ASTRAZENECA-2009SE13371

PATIENT
  Age: 73 Year
  Sex: Female
  Weight: 72.6 kg

DRUGS (6)
  1. CRESTOR [Suspect]
     Indication: BLOOD CHOLESTEROL INCREASED
     Route: 048
     Dates: start: 20080801, end: 20090201
  2. CRESTOR [Suspect]
     Route: 048
     Dates: start: 20090201
  3. CRESTOR [Suspect]
     Dosage: HIGHER DOSE
     Route: 048
  4. TOPROL-XL [Concomitant]
     Indication: HYPERTENSION
     Route: 048
  5. LYSINOPRIL [Concomitant]
     Indication: HYPERTENSION
     Route: 048
  6. HASHIMOTO SYNDROME [Concomitant]
     Indication: HYPERTHYROIDISM
     Route: 048

REACTIONS (2)
  - BLOOD CREATINE PHOSPHOKINASE INCREASED [None]
  - RENAL ARTERY STENOSIS [None]
